FAERS Safety Report 7208483-9 (Version None)
Quarter: 2011Q1

REPORT INFORMATION
  Report Type: 
  Country: None (occurrence: None)
  Receive Date: 20110104
  Receipt Date: 20101227
  Transmission Date: 20110831
  Serious: Yes (Hospitalization)
  Sender: FDA-Public Use
  Company Number: FR-SANOFI-AVENTIS-2010SA072303

PATIENT
  Age: 66 Year
  Sex: Female

DRUGS (4)
  1. MULTAQ [Suspect]
     Indication: ATRIAL FIBRILLATION
     Route: 048
     Dates: start: 20101103
  2. AMIODARONE [Suspect]
     Indication: ATRIAL FIBRILLATION
     Route: 048
     Dates: start: 20101014, end: 20101101
  3. NEBIVOLOL [Concomitant]
     Route: 048
     Dates: start: 20100913
  4. COUMADIN [Concomitant]
     Route: 048
     Dates: start: 20100913

REACTIONS (3)
  - PULMONARY CONGESTION [None]
  - LEFT VENTRICULAR FAILURE [None]
  - DYSPNOEA [None]
